FAERS Safety Report 19679889 (Version 3)
Quarter: 2023Q2

REPORT INFORMATION
  Report Type: Report from Study
  Country: US (occurrence: US)
  Receive Date: 20210810
  Receipt Date: 20230627
  Transmission Date: 20230721
  Serious: Yes (Hospitalization, Other)
  Sender: FDA-Public Use
  Company Number: US-TAKEDA-US201723686

PATIENT
  Age: 58 Year
  Sex: Female
  Weight: 61 kg

DRUGS (25)
  1. TEDUGLUTIDE [Suspect]
     Active Substance: TEDUGLUTIDE
     Indication: Short-bowel syndrome
     Dosage: 2.49 MILLIGRAM, QD
     Route: 042
     Dates: end: 20160930
  2. TEDUGLUTIDE [Suspect]
     Active Substance: TEDUGLUTIDE
     Indication: Short-bowel syndrome
     Dosage: 2.49 MILLIGRAM, QD
     Route: 042
     Dates: end: 20160930
  3. TEDUGLUTIDE [Suspect]
     Active Substance: TEDUGLUTIDE
     Indication: Short-bowel syndrome
     Dosage: 2.49 MILLIGRAM, QD
     Route: 042
     Dates: end: 20160930
  4. TEDUGLUTIDE [Suspect]
     Active Substance: TEDUGLUTIDE
     Indication: Short-bowel syndrome
     Dosage: 2.49 MILLIGRAM, QD
     Route: 042
     Dates: end: 20160930
  5. TEDUGLUTIDE [Suspect]
     Active Substance: TEDUGLUTIDE
     Dosage: 2.5 MILLIGRAM, QD
     Route: 042
     Dates: end: 20161031
  6. TEDUGLUTIDE [Suspect]
     Active Substance: TEDUGLUTIDE
     Dosage: 2.5 MILLIGRAM, QD
     Route: 042
     Dates: end: 20161031
  7. TEDUGLUTIDE [Suspect]
     Active Substance: TEDUGLUTIDE
     Dosage: 2.5 MILLIGRAM, QD
     Route: 042
     Dates: end: 20161031
  8. TEDUGLUTIDE [Suspect]
     Active Substance: TEDUGLUTIDE
     Dosage: 2.5 MILLIGRAM, QD
     Route: 042
     Dates: end: 20161031
  9. TEDUGLUTIDE [Suspect]
     Active Substance: TEDUGLUTIDE
     Dosage: 2.5 MILLIGRAM, QD
     Route: 042
     Dates: end: 20161205
  10. TEDUGLUTIDE [Suspect]
     Active Substance: TEDUGLUTIDE
     Dosage: 2.5 MILLIGRAM, QD
     Route: 042
     Dates: end: 20161205
  11. TEDUGLUTIDE [Suspect]
     Active Substance: TEDUGLUTIDE
     Dosage: 2.5 MILLIGRAM, QD
     Route: 042
     Dates: end: 20161205
  12. TEDUGLUTIDE [Suspect]
     Active Substance: TEDUGLUTIDE
     Dosage: 2.5 MILLIGRAM, QD
     Route: 042
     Dates: end: 20161205
  13. TEDUGLUTIDE [Suspect]
     Active Substance: TEDUGLUTIDE
     Dosage: 2.49 MILLIGRAM
     Route: 042
     Dates: end: 20170314
  14. TEDUGLUTIDE [Suspect]
     Active Substance: TEDUGLUTIDE
     Dosage: 2.49 MILLIGRAM
     Route: 042
     Dates: end: 20170314
  15. TEDUGLUTIDE [Suspect]
     Active Substance: TEDUGLUTIDE
     Dosage: 2.49 MILLIGRAM
     Route: 042
     Dates: end: 20170314
  16. TEDUGLUTIDE [Suspect]
     Active Substance: TEDUGLUTIDE
     Dosage: 2.49 MILLIGRAM
     Route: 042
     Dates: end: 20170314
  17. TEDUGLUTIDE [Suspect]
     Active Substance: TEDUGLUTIDE
     Dosage: 2.5 MILLIGRAM, QD
     Route: 042
     Dates: end: 20170808
  18. TEDUGLUTIDE [Suspect]
     Active Substance: TEDUGLUTIDE
     Dosage: 2.5 MILLIGRAM, QD
     Route: 042
     Dates: end: 20170808
  19. TEDUGLUTIDE [Suspect]
     Active Substance: TEDUGLUTIDE
     Dosage: 2.5 MILLIGRAM, QD
     Route: 042
     Dates: end: 20170808
  20. TEDUGLUTIDE [Suspect]
     Active Substance: TEDUGLUTIDE
     Dosage: 2.5 MILLIGRAM, QD
     Route: 042
     Dates: end: 20170808
  21. ALTEPLASE [Concomitant]
     Active Substance: ALTEPLASE
     Indication: Prophylaxis
  22. OXYCODONE [Concomitant]
     Active Substance: OXYCODONE
     Indication: Pain
  23. VANCOMYCIN [Concomitant]
     Active Substance: VANCOMYCIN
     Indication: Infection
  24. MIDODRINE [Concomitant]
     Active Substance: MIDODRINE
     Indication: Hypotension
     Dosage: 7.5 MILLIGRAM, TID
     Route: 048
     Dates: start: 20161023, end: 20161025
  25. LOPERAMIDE [Concomitant]
     Active Substance: LOPERAMIDE
     Indication: Enterocutaneous fistula
     Dosage: 4 MILLIGRAM, QD
     Route: 048
     Dates: start: 20171113, end: 20171119

REACTIONS (4)
  - Enterocutaneous fistula [Not Recovered/Not Resolved]
  - Bacteraemia [Recovered/Resolved]
  - Hypokalaemia [Recovered/Resolved]
  - Nausea [Not Recovered/Not Resolved]

NARRATIVE: CASE EVENT DATE: 20160315
